FAERS Safety Report 20756903 (Version 1)
Quarter: 2022Q2

REPORT INFORMATION
  Report Type: Spontaneous
  Country: DE (occurrence: DE)
  Receive Date: 20220427
  Receipt Date: 20220427
  Transmission Date: 20220721
  Serious: Yes (Hospitalization, Other)
  Sender: FDA-Public Use
  Company Number: DE-EMBRYOTOX-202113450

PATIENT
  Age: 1 Day
  Sex: Male
  Weight: 4.175 kg

DRUGS (2)
  1. VENLAFAXINE HCL [Suspect]
     Active Substance: VENLAFAXINE HYDROCHLORIDE
     Indication: Depression
     Dosage: 150 [MG/D ]
     Route: 064
     Dates: start: 20201113, end: 20210814
  2. VACCINE DIPH+PERTU+TET [Concomitant]
     Indication: Immunisation
     Dosage: DOSE NUMBER UNKNOWN,SINGLE
     Route: 064
     Dates: start: 20210706, end: 20210706

REACTIONS (7)
  - Maternal exposure during pregnancy [Unknown]
  - Pulmonary artery stenosis congenital [Recovered/Resolved]
  - Mitral valve incompetence [Unknown]
  - Respiratory disorder neonatal [Recovered/Resolved]
  - Cyanosis neonatal [Recovered/Resolved]
  - Laryngomalacia [Unknown]
  - Atrial septal defect [Recovered/Resolved]

NARRATIVE: CASE EVENT DATE: 20210801
